FAERS Safety Report 18689329 (Version 1)
Quarter: 2020Q4

REPORT INFORMATION
  Report Type: Spontaneous
  Country: SE (occurrence: SE)
  Receive Date: 20201231
  Receipt Date: 20201231
  Transmission Date: 20210114
  Serious: Yes (Other)
  Sender: FDA-Public Use
  Company Number: SE-TEVA-2020-SE-1863949

PATIENT
  Age: 78 Year
  Sex: Female

DRUGS (3)
  1. KALCIPOS [Concomitant]
     Active Substance: CALCIUM CARBONATE
  2. ESCITALOPRAM [Concomitant]
     Active Substance: ESCITALOPRAM OXALATE
  3. ZOLEDRONIC ACID (ANHYDROUS) [Suspect]
     Active Substance: ZOLEDRONIC ACID ANHYDROUS
     Indication: OSTEOPOROSIS
     Dosage: 6.25 ML
     Route: 065
     Dates: start: 20201015, end: 20201015

REACTIONS (3)
  - Arthralgia [Recovering/Resolving]
  - Rash [Not Recovered/Not Resolved]
  - Red blood cell sedimentation rate increased [Recovering/Resolving]

NARRATIVE: CASE EVENT DATE: 20201015
